FAERS Safety Report 10311051 (Version 2)
Quarter: 2014Q3

REPORT INFORMATION
  Report Type: Spontaneous
  Country: GB (occurrence: None)
  Receive Date: 20140715
  Receipt Date: 20140819
  Transmission Date: 20150326
  Serious: Yes (Other)
  Sender: FDA-Public Use
  Company Number: AUR-APL-2014-07381

PATIENT
  Age: 15 Year
  Sex: Male

DRUGS (1)
  1. RISPERIDONE (RISPERIDONE) UNKNOWN, UNKNOWN [Suspect]
     Active Substance: RISPERIDONE
     Indication: SCHIZOPHRENIA, PARANOID TYPE
     Dosage: UNKNOWN

REACTIONS (4)
  - Hallucination, auditory [None]
  - Disturbance in attention [None]
  - Suicide attempt [None]
  - Drug ineffective [None]
